FAERS Safety Report 7038630-3 (Version None)
Quarter: 2010Q4

REPORT INFORMATION
  Report Type: 
  Country: None (occurrence: None)
  Receive Date: 20101011
  Receipt Date: 20100930
  Transmission Date: 20110411
  Serious: Yes (Other)
  Sender: FDA-Public Use
  Company Number: US-PFIZER INC-2010054803

PATIENT
  Sex: Female

DRUGS (10)
  1. ZITHROMAX [Suspect]
  2. LISINOPRIL [Suspect]
     Indication: BLOOD PRESSURE
     Dosage: 40 MG, 1X/DAY
     Dates: end: 20100415
  3. ERYTHROMYCIN ETHYLSUCCINATE [Suspect]
  4. CODEINE [Suspect]
  5. HYDRALAZINE [Suspect]
  6. CEFTIN [Suspect]
  7. HYTRIN [Suspect]
  8. DIOVAN [Suspect]
  9. AUGMENTIN '125' [Suspect]
  10. CECLOR [Suspect]

REACTIONS (6)
  - BLOOD PRESSURE FLUCTUATION [None]
  - COUGH [None]
  - DRUG INTOLERANCE [None]
  - HEADACHE [None]
  - NAUSEA [None]
  - RASH [None]
